FAERS Safety Report 4408209-8 (Version None)
Quarter: 2004Q3

REPORT INFORMATION
  Report Type: 
  Country: None (occurrence: None)
  Receive Date: 20040722
  Receipt Date: 20040714
  Transmission Date: 20050211
  Serious: Yes (Other)
  Sender: FDA-Public Use
  Company Number: 2004223821JP

PATIENT
  Sex: Female

DRUGS (3)
  1. EPIRUBICIN [Suspect]
     Indication: BREAST CANCER
     Dosage: CYCLIC, IV
     Route: 042
  2. ENDOXAN [Concomitant]
  3. FLUOROURACIL [Concomitant]

REACTIONS (2)
  - ANGIOSCLEROSIS [None]
  - VASCULITIS [None]
